FAERS Safety Report 13618015 (Version 4)
Quarter: 2018Q1

REPORT INFORMATION
  Report Type: Report from Study
  Country: US (occurrence: US)
  Receive Date: 20170606
  Receipt Date: 20180301
  Transmission Date: 20180508
  Serious: No
  Sender: FDA-Public Use
  Company Number: US-009507513-1705USA006294

PATIENT
  Age: 16 Year
  Sex: Female
  Weight: 85.5 kg

DRUGS (1)
  1. IMPLANON [Suspect]
     Active Substance: ETONOGESTREL
     Indication: CONTRACEPTION
     Dosage: 1 IMPLANT (68 MG), EVERY 3 YEARS, LEFT ARM
     Route: 058
     Dates: start: 201104, end: 20170508

REACTIONS (4)
  - Complication associated with device [Recovered/Resolved]
  - Incorrect drug administration duration [Recovered/Resolved]
  - Device deployment issue [Recovered/Resolved]
  - Device difficult to use [Recovered/Resolved]

NARRATIVE: CASE EVENT DATE: 201104
